FAERS Safety Report 5239885-8 (Version None)
Quarter: 2007Q1

REPORT INFORMATION
  Report Type: 
  Country: None (occurrence: None)
  Receive Date: 20070216
  Receipt Date: 20070207
  Transmission Date: 20070707
  Serious: Yes (Hospitalization)
  Sender: FDA-Public Use
  Company Number: US-ABBOTT-06P-163-0340974-00

PATIENT
  Sex: Female
  Weight: 2.093 kg

DRUGS (7)
  1. RITONAVIR SOFT GELATIN CAPSULES [Suspect]
     Indication: DRUG EXPOSURE DURING PREGNANCY
  2. ATAZANAVIR SULFATE [Suspect]
     Indication: DRUG EXPOSURE DURING PREGNANCY
  3. ABACAVIR/LAMIVUDINE [Suspect]
     Indication: DRUG EXPOSURE DURING PREGNANCY
  4. GLIBENCLAMIDE [Suspect]
     Indication: DRUG EXPOSURE DURING PREGNANCY
  5. ZIDOVUDINE [Suspect]
     Indication: DRUG EXPOSURE DURING PREGNANCY
  6. ZIDOVUDINE [Suspect]
  7. ZIDOVUDINE [Concomitant]
     Indication: PROPHYLAXIS AGAINST HIV INFECTION
     Route: 048

REACTIONS (10)
  - ABDOMINAL DISTENSION [None]
  - FEELING JITTERY [None]
  - HYPERBILIRUBINAEMIA [None]
  - HYPOGLYCAEMIA [None]
  - INFUSION SITE REACTION [None]
  - METABOLIC ACIDOSIS [None]
  - PREMATURE BABY [None]
  - SEPSIS [None]
  - SMALL FOR DATES BABY [None]
  - UMBILICAL ERYTHEMA [None]
